FAERS Safety Report 17157743 (Version 1)
Quarter: 2019Q4

REPORT INFORMATION
  Report Type: Spontaneous
  Country: US (occurrence: US)
  Receive Date: 20191121
  Receipt Date: 20191121
  Transmission Date: 20200122
  Serious: Yes (Hospitalization)
  Sender: FDA-Public Use
  Company Number: None

PATIENT
  Age: 53 Year
  Sex: Female
  Weight: 149 kg

DRUGS (1)
  1. ASPIRIN. [Suspect]
     Active Substance: ASPIRIN
     Dates: end: 20191110

REACTIONS (6)
  - Osteoarthritis [None]
  - Intervertebral disc disorder [None]
  - Intervertebral disc degeneration [None]
  - Pathological fracture [None]
  - Spinal stenosis [None]
  - Metastatic neoplasm [None]

NARRATIVE: CASE EVENT DATE: 20191110
